FAERS Safety Report 24078550 (Version 1)
Quarter: 2024Q3

REPORT INFORMATION
  Report Type: Spontaneous
  Country: MX (occurrence: MX)
  Receive Date: 20240711
  Receipt Date: 20240711
  Transmission Date: 20241016
  Serious: Yes (Hospitalization, Other)
  Sender: Vantive US Healthcare
  Company Number: MX-VANTIVE-2024VAN017298

PATIENT
  Age: 70 Year
  Sex: Male
  Weight: 79 kg

DRUGS (5)
  1. DIANEAL [Suspect]
     Active Substance: CALCIUM CHLORIDE\DEXTROSE\MAGNESIUM CHLORIDE\SODIUM CHLORIDE\SODIUM LACTATE
     Indication: Dialysis
     Dosage: UNK
     Route: 033
     Dates: start: 201907
  2. FUROSEMIDE [Concomitant]
     Active Substance: FUROSEMIDE
     Route: 048
  3. TRAMADOL [Concomitant]
     Active Substance: TRAMADOL\TRAMADOL HYDROCHLORIDE
     Route: 048
  4. INSULIN NOS [Concomitant]
     Active Substance: INSULIN NOS
     Indication: Diabetes mellitus
     Route: 058
  5. IRBESARTAN [Concomitant]
     Active Substance: IRBESARTAN
     Route: 048

REACTIONS (5)
  - Ultrafiltration failure [Unknown]
  - Oedema peripheral [Recovered/Resolved]
  - Peritonitis bacterial [Recovered/Resolved]
  - Peritoneal cloudy effluent [Recovered/Resolved]
  - Peritoneal dialysis complication [Recovered/Resolved]

NARRATIVE: CASE EVENT DATE: 20240524
